FAERS Safety Report 4305340-2 (Version None)
Quarter: 2004Q1

REPORT INFORMATION
  Report Type: 
  Country: None (occurrence: None)
  Receive Date: 20040226
  Receipt Date: 20030626
  Transmission Date: 20041129
  Serious: No
  Sender: FDA-Public Use
  Company Number: US-BRISTOL-MYERS SQUIBB COMPANY-12311999

PATIENT
  Age: 47 Year
  Sex: Female
  Weight: 68 kg

DRUGS (9)
  1. TAXOL [Suspect]
     Indication: BREAST CANCER
     Route: 042
     Dates: start: 20030625, end: 20030625
  2. TAGAMET [Concomitant]
     Indication: PREMEDICATION
     Dates: start: 20030625
  3. BENADRYL [Concomitant]
     Indication: PREMEDICATION
     Dates: start: 20030625
  4. ZOFRAN [Concomitant]
     Indication: PREMEDICATION
     Dates: start: 20030625
  5. DECADRON [Concomitant]
     Indication: PREMEDICATION
     Dates: start: 20030625
  6. PAXIL [Concomitant]
  7. IRON [Concomitant]
  8. COMPAZINE [Concomitant]
  9. ATIVAN [Concomitant]

REACTIONS (4)
  - FLUSHING [None]
  - NAUSEA [None]
  - OXYGEN SATURATION DECREASED [None]
  - PRURITUS [None]
